FAERS Safety Report 5314915-3 (Version None)
Quarter: 2007Q2

REPORT INFORMATION
  Report Type: 
  Country: None (occurrence: None)
  Receive Date: 20070502
  Receipt Date: 20070424
  Transmission Date: 20071010
  Serious: Yes (Other)
  Sender: FDA-Public Use
  Company Number: US-JNJFOC-20070405516

PATIENT
  Age: 45 Year
  Sex: Male
  Weight: 90.72 kg

DRUGS (3)
  1. IMODIUM A-D [Suspect]
     Route: 048
  2. IMODIUM A-D [Suspect]
     Indication: DIARRHOEA
     Dosage: DOSE UNKNOWN
     Route: 048
  3. ANTIBIOTIC [Suspect]
     Indication: NASOPHARYNGITIS

REACTIONS (1)
  - RECTAL HAEMORRHAGE [None]
